FAERS Safety Report 24070570 (Version 1)
Quarter: 2024Q3

REPORT INFORMATION
  Report Type: Report from Study
  Country: TR (occurrence: TR)
  Receive Date: 20240710
  Receipt Date: 20240710
  Transmission Date: 20241016
  Serious: No
  Sender: ROCHE
  Company Number: TR-ROCHE-3345471

PATIENT
  Age: 63 Year
  Sex: Female

DRUGS (2)
  1. ALECTINIB [Suspect]
     Active Substance: ALECTINIB
     Indication: Lung cancer metastatic
     Route: 048
     Dates: start: 20220524
  2. METOPROLOL [Concomitant]
     Active Substance: METOPROLOL
     Indication: Cardiac failure
     Route: 048
     Dates: start: 202302

REACTIONS (2)
  - Bradycardia [Not Recovered/Not Resolved]
  - Anaemia [Recovering/Resolving]

NARRATIVE: CASE EVENT DATE: 20230307
